FAERS Safety Report 10238736 (Version 2)
Quarter: 2014Q2

REPORT INFORMATION
  Report Type: Spontaneous
  Country: FR (occurrence: FR)
  Receive Date: 20140616
  Receipt Date: 20140616
  Transmission Date: 20141212
  Serious: Yes (Hospitalization)
  Sender: FDA-Public Use
  Company Number: FR-SA-BMS14031686

PATIENT
  Age: 82 Year
  Sex: Female

DRUGS (9)
  1. COAPROVEL [Suspect]
     Indication: HYPERTENSION
     Dosage: 1 DOSAGE FORM = 150MG/12.5MG
     Route: 048
     Dates: start: 20070507, end: 20070620
  2. METHOTREXATE  BELLON [Suspect]
     Indication: RHEUMATOID ARTHRITIS
     Route: 048
     Dates: start: 200601, end: 20070612
  3. CORTANCYL [Concomitant]
     Indication: RHEUMATOID ARTHRITIS
     Route: 048
     Dates: start: 20070507
  4. LASILIX [Concomitant]
     Indication: OEDEMA
     Route: 048
     Dates: start: 20070507
  5. LOVENOX [Concomitant]
     Indication: ARRHYTHMIA
     Route: 058
     Dates: start: 20070507, end: 20070612
  6. KARDEGIC [Concomitant]
     Indication: JOINT PROSTHESIS USER
     Dosage: 1 SACHET/DAY
     Route: 048
     Dates: start: 20070507
  7. INEXIUM [Concomitant]
     Route: 048
     Dates: start: 20070507
  8. OXYCONTIN [Concomitant]
     Dosage: FORM: SUSTAINED RELEASED FILM COATED TABLET
     Route: 048
     Dates: start: 20070507
  9. OXYNORM [Concomitant]
     Dosage: STRENGTH: 5MG
     Route: 048
     Dates: start: 20070507

REACTIONS (2)
  - Bone marrow failure [Recovered/Resolved]
  - Hypotension [Unknown]
